FAERS Safety Report 6335285-8 (Version None)
Quarter: 2009Q3

REPORT INFORMATION
  Report Type: 
  Country: None (occurrence: None)
  Receive Date: 20090831
  Receipt Date: 20090826
  Transmission Date: 20100115
  Serious: Yes (Hospitalization)
  Sender: FDA-Public Use
  Company Number: FR-WYE-G04314209

PATIENT
  Sex: Male

DRUGS (7)
  1. ADVIL [Suspect]
     Indication: RESTLESS LEGS SYNDROME
     Route: 048
     Dates: start: 20090509, end: 20090514
  2. SIFROL [Concomitant]
     Route: 048
  3. APROVEL [Concomitant]
     Route: 048
  4. CORDARONE [Concomitant]
     Route: 048
  5. PROSCAR [Concomitant]
     Route: 048
  6. PLAVIX [Suspect]
     Route: 048
     Dates: start: 20090509, end: 20090517
  7. ALDACTAZINE [Concomitant]
     Route: 048

REACTIONS (4)
  - ACUTE PRERENAL FAILURE [None]
  - GASTRIC ULCER HAEMORRHAGE [None]
  - GASTRITIS [None]
  - HAEMORRHAGIC ANAEMIA [None]
